FAERS Safety Report 6389466-8 (Version None)
Quarter: 2009Q4

REPORT INFORMATION
  Report Type: 
  Country: None (occurrence: None)
  Receive Date: 20091006
  Receipt Date: 20090925
  Transmission Date: 20100525
  Serious: Yes (Other)
  Sender: FDA-Public Use
  Company Number: CA-ASTRAZENECA-2009SE16180

PATIENT
  Age: 55 Year
  Sex: Male
  Weight: 75 kg

DRUGS (4)
  1. MERREM [Suspect]
     Indication: INFECTION
     Route: 042
     Dates: start: 20090922
  2. VALPROIC ACID [Interacting]
     Indication: CONVULSION
     Route: 050
     Dates: start: 20080101
  3. TEGRETOL [Concomitant]
     Indication: CONVULSION
     Route: 050
     Dates: start: 20080101
  4. KEPPRA [Concomitant]
     Indication: CONVULSION
     Route: 050
     Dates: start: 20080101

REACTIONS (2)
  - ATONIC SEIZURES [None]
  - DRUG INTERACTION [None]
